FAERS Safety Report 5792605-0 (Version None)
Quarter: 2008Q2

REPORT INFORMATION
  Report Type: 
  Country: None (occurrence: None)
  Receive Date: 20080626
  Receipt Date: 20080616
  Transmission Date: 20081010
  Serious: Yes (Death, Hospitalization)
  Sender: FDA-Public Use
  Company Number: PT-PFIZER INC-2008050968

PATIENT
  Age: 16 Year
  Sex: Female

DRUGS (1)
  1. CYTOTEC [Suspect]
     Indication: ABORTION
     Dates: start: 20050608, end: 20050601

REACTIONS (4)
  - HAEMORRHAGE [None]
  - OFF LABEL USE [None]
  - OVERDOSE [None]
  - SEPSIS [None]
